FAERS Safety Report 21879884 (Version 1)
Quarter: 2023Q1

REPORT INFORMATION
  Report Type: Spontaneous
  Country: US (occurrence: None)
  Receive Date: 20230117
  Receipt Date: 20230117
  Transmission Date: 20230418
  Serious: No
  Sender: FDA-Public Use
  Company Number: None

PATIENT
  Age: 68 Year
  Sex: Female
  Weight: 67.5 kg

DRUGS (10)
  1. TERFENADINE [Suspect]
     Active Substance: TERFENADINE
     Indication: Onychomycosis
     Dosage: OTHER QUANTITY : 30 TABLET(S);?FREQUENCY : DAILY;?
     Route: 048
     Dates: start: 20221012, end: 20221205
  2. FLUCONAZOLE [Suspect]
     Active Substance: FLUCONAZOLE
     Indication: Onychomycosis
     Dosage: OTHER QUANTITY : 12 TABLET(S);?OTHER FREQUENCY : 1 PER WEEK;?
     Route: 048
     Dates: start: 20221206, end: 20230102
  3. ALENDRONATE [Concomitant]
     Active Substance: ALENDRONATE SODIUM
  4. FISH OIL [Concomitant]
     Active Substance: FISH OIL
  5. FERROUS SULFATE [Concomitant]
     Active Substance: FERROUS SULFATE
  6. VITAMIN C [Concomitant]
     Active Substance: ASCORBIC ACID
  7. VITAMIN D [Concomitant]
     Active Substance: VITAMIN D NOS
  8. CALCIUM 600MG/VIT D [Concomitant]
  9. MINERALS\VITAMINS [Concomitant]
     Active Substance: MINERALS\VITAMINS
  10. NAPROXEN [Concomitant]
     Active Substance: NAPROXEN

REACTIONS (2)
  - Taste disorder [None]
  - Dysgeusia [None]

NARRATIVE: CASE EVENT DATE: 20221120
